FAERS Safety Report 12648418 (Version 1)
Quarter: 2016Q3

REPORT INFORMATION
  Report Type: Spontaneous
  Country: None (occurrence: US)
  Receive Date: 20160812
  Receipt Date: 20160812
  Transmission Date: 20161109
  Serious: No
  Sender: FDA-Public Use
  Company Number: US-SHEFFIELD PHARMACEUTICALS, LLC-1056237

PATIENT
  Sex: Male

DRUGS (1)
  1. DR. SHEFFIELD ANTI ITCH CREAM [Suspect]
     Active Substance: DIPHENHYDRAMINE HYDROCHLORIDE\ZINC ACETATE
     Route: 061
     Dates: start: 20160728, end: 20160728

REACTIONS (1)
  - Administration site rash [Unknown]

NARRATIVE: CASE EVENT DATE: 20160728
